FAERS Safety Report 4869142-0 (Version None)
Quarter: 2005Q4

REPORT INFORMATION
  Report Type: 
  Country: None (occurrence: None)
  Receive Date: 20051228
  Receipt Date: 20051228
  Transmission Date: 20060501
  Serious: No
  Sender: FDA-Public Use
  Company Number: None

PATIENT
  Age: 56 Year
  Sex: Female

DRUGS (3)
  1. OMNIPAQUE 350 [Suspect]
     Indication: COMPUTERISED TOMOGRAM
     Dosage: 140 ML IV
     Route: 042
  2. OMNIPAQUE 350 [Suspect]
  3. MORPHINE [Concomitant]

REACTIONS (2)
  - ASTHENIA [None]
  - LARYNGEAL OEDEMA [None]
